FAERS Safety Report 5223132-7 (Version None)
Quarter: 2007Q1

REPORT INFORMATION
  Report Type: 
  Country: None (occurrence: None)
  Receive Date: 20061201
  Receipt Date: 20060825
  Transmission Date: 20070707
  Serious: No
  Sender: FDA-Public Use
  Company Number: 2005PV000789

PATIENT
  Age: 66 Year
  Sex: Female

DRUGS (6)
  1. BYETTA [Suspect]
     Indication: DIABETES MELLITUS NON-INSULIN-DEPENDENT
     Dosage: SEE IMAGE
     Route: 058
     Dates: start: 20050622, end: 20050701
  2. BYETTA [Suspect]
     Indication: DIABETES MELLITUS NON-INSULIN-DEPENDENT
     Dosage: SEE IMAGE
     Route: 058
     Dates: start: 20050701, end: 20060101
  3. BYETTA [Suspect]
     Indication: DIABETES MELLITUS NON-INSULIN-DEPENDENT
     Dosage: SEE IMAGE
     Route: 058
     Dates: start: 20060803
  4. ACTOS [Suspect]
     Indication: DIABETES MELLITUS NON-INSULIN-DEPENDENT
     Dosage: 15 MG; QD; PO
     Route: 048
     Dates: start: 20030101, end: 20060101
  5. AMARYL [Concomitant]
  6. SYNTHROID [Concomitant]

REACTIONS (12)
  - BLOOD GLUCOSE DECREASED [None]
  - COUGH [None]
  - DEAFNESS [None]
  - DECREASED APPETITE [None]
  - DIZZINESS [None]
  - EYE PAIN [None]
  - FATIGUE [None]
  - NASAL CONGESTION [None]
  - NAUSEA [None]
  - PHOTOPHOBIA [None]
  - THROAT IRRITATION [None]
  - TREMOR [None]
